FAERS Safety Report 15533706 (Version 1)
Quarter: 2018Q4

REPORT INFORMATION
  Report Type: Spontaneous
  Country: FR (occurrence: FR)
  Receive Date: 20181019
  Receipt Date: 20181019
  Transmission Date: 20190205
  Serious: Yes (Disabling)
  Sender: FDA-Public Use
  Company Number: FR-PFIZER INC-2018414858

PATIENT
  Age: 91 Year
  Sex: Female
  Weight: 52.7 kg

DRUGS (2)
  1. ALDACTONE [Suspect]
     Active Substance: SPIRONOLACTONE
     Dosage: 25 MG, 1X/DAY
     Route: 048
     Dates: start: 201711, end: 20180612
  2. FUROSEMIDE RENAUDIN [Suspect]
     Active Substance: FUROSEMIDE
     Dosage: 80 MG, 1X/DAY
     Route: 041
     Dates: start: 20180611, end: 20180611

REACTIONS (2)
  - Cognitive disorder [Not Recovered/Not Resolved]
  - Hyponatraemia [Recovered/Resolved]

NARRATIVE: CASE EVENT DATE: 20180612
